FAERS Safety Report 5588376-3 (Version None)
Quarter: 2008Q1

REPORT INFORMATION
  Report Type: 
  Country: None (occurrence: None)
  Receive Date: 20080111
  Receipt Date: 20071023
  Transmission Date: 20080703
  Serious: No
  Sender: FDA-Public Use
  Company Number: A0689233A

PATIENT
  Age: 64 Year
  Sex: Female

DRUGS (2)
  1. TYKERB [Suspect]
     Indication: BREAST CANCER
     Dosage: 250MG FIVE TIMES PER DAY
     Route: 048
     Dates: start: 20070904, end: 20070925
  2. XELODA [Concomitant]
     Dosage: 750MG THREE TIMES PER DAY

REACTIONS (2)
  - ANORECTAL DISCOMFORT [None]
  - HAEMORRHOIDS [None]
